FAERS Safety Report 6691266-6 (Version None)
Quarter: 2010Q2

REPORT INFORMATION
  Report Type: 
  Country: None (occurrence: None)
  Receive Date: 20100422
  Receipt Date: 20100412
  Transmission Date: 20101027
  Serious: Yes (Other)
  Sender: FDA-Public Use
  Company Number: US-ASTRAZENECA-2009UW16537

PATIENT
  Sex: Male

DRUGS (6)
  1. SEROQUEL [Suspect]
     Route: 048
     Dates: start: 19990616
  2. ZESTRIL [Concomitant]
     Dates: start: 19990529
  3. CLOZARIL [Concomitant]
     Dates: start: 19990529
  4. BENZTROPINE MESYLATE [Concomitant]
     Dates: start: 19990529
  5. PROPRANOLOL [Concomitant]
     Dates: start: 19990609
  6. LITHIUM CARBONATE [Concomitant]
     Dates: start: 19990616

REACTIONS (2)
  - DIABETES MELLITUS INADEQUATE CONTROL [None]
  - DIABETIC NEUROPATHY [None]
